FAERS Safety Report 6168933-6 (Version None)
Quarter: 2009Q2

REPORT INFORMATION
  Report Type: 
  Country: None (occurrence: None)
  Receive Date: 20090427
  Receipt Date: 20090424
  Transmission Date: 20091009
  Serious: Yes (Hospitalization, Other)
  Sender: FDA-Public Use
  Company Number: PHHY2009BE15465

PATIENT
  Sex: Male

DRUGS (1)
  1. RASILEZ [Suspect]
     Dosage: 300 MG DAILY
     Route: 048
     Dates: start: 20090330, end: 20090418

REACTIONS (1)
  - MYOCARDIAL INFARCTION [None]
